FAERS Safety Report 9303650 (Version 2)
Quarter: 2013Q2

REPORT INFORMATION
  Report Type: Report from Study
  Country: US (occurrence: US)
  Receive Date: 20130522
  Receipt Date: 20130611
  Transmission Date: 20140414
  Serious: Yes (Hospitalization)
  Sender: FDA-Public Use
  Company Number: US-JNJFOC-20130512488

PATIENT
  Age: 16 Year
  Sex: Female
  Weight: 46.5 kg

DRUGS (6)
  1. REMICADE [Suspect]
     Indication: COLITIS ULCERATIVE
     Route: 042
     Dates: start: 20111105
  2. ACETYL SALICYLIC ACID [Concomitant]
     Indication: INFLAMMATORY BOWEL DISEASE
     Route: 048
  3. PREDNISONE [Concomitant]
     Indication: INFLAMMATORY BOWEL DISEASE
     Route: 065
  4. AZATHIOPRINE [Concomitant]
     Indication: INFLAMMATORY BOWEL DISEASE
     Route: 065
  5. NUVARING [Concomitant]
     Route: 065
  6. ZYRTEC [Concomitant]
     Route: 065

REACTIONS (1)
  - Colitis ulcerative [Recovered/Resolved]
